FAERS Safety Report 24784575 (Version 1)
Quarter: 2024Q4

REPORT INFORMATION
  Report Type: Spontaneous
  Country: US (occurrence: US)
  Receive Date: 20241227
  Receipt Date: 20241227
  Transmission Date: 20250115
  Serious: Yes (Other)
  Sender: EISAI
  Company Number: US-Eisai-EC-2024-181292

PATIENT
  Age: 60 Year
  Sex: Male

DRUGS (1)
  1. LEQEMBI [Suspect]
     Active Substance: LECANEMAB-IRMB
     Indication: Product used for unknown indication
     Dosage: DOSE UNKNOWN.
     Route: 042
     Dates: start: 20241026, end: 20241207

REACTIONS (2)
  - Cerebellar infarction [Unknown]
  - Superficial vein thrombosis [Unknown]

NARRATIVE: CASE EVENT DATE: 20241201
